FAERS Safety Report 5215398-4 (Version None)
Quarter: 2007Q1

REPORT INFORMATION
  Report Type: 
  Country: None (occurrence: None)
  Receive Date: 20070116
  Receipt Date: 20070102
  Transmission Date: 20070707
  Serious: No
  Sender: FDA-Public Use
  Company Number: 2006-151499-NL

PATIENT
  Age: 24 Year
  Sex: Female

DRUGS (3)
  1. ETONOGESTREL [Suspect]
     Indication: CONTRACEPTION
     Dosage: DF
     Dates: start: 20061123, end: 20061128
  2. ESOMEPRAZOLE MAGNESIUM [Concomitant]
  3. ATENOLOL [Concomitant]

REACTIONS (1)
  - DRUG HYPERSENSITIVITY [None]
